FAERS Safety Report 10024048 (Version 1)
Quarter: 2014Q1

REPORT INFORMATION
  Report Type: Spontaneous
  Country: US (occurrence: None)
  Receive Date: 20140304
  Receipt Date: 20140304
  Transmission Date: 20141002
  Serious: Yes (Life-Threatening, Hospitalization, Other)
  Sender: FDA-Public Use
  Company Number: RB-60338-2013

PATIENT
  Age: 12 Month
  Sex: Male

DRUGS (1)
  1. SUBOXONE 8 MG [Suspect]
     Indication: PRODUCT USED FOR UNKNOWN INDICATION
     Dosage: SWALLOWED LESS THAN ONE WHOLE PILL. ORAL
     Route: 048
     Dates: start: 201310, end: 201310

REACTIONS (2)
  - Accidental exposure to product by child [None]
  - Vomiting [None]
